FAERS Safety Report 7473004-2 (Version None)
Quarter: 2011Q2

REPORT INFORMATION
  Report Type: 
  Country: None (occurrence: None)
  Receive Date: 20110511
  Receipt Date: 20110503
  Transmission Date: 20111010
  Serious: Yes (Other)
  Sender: FDA-Public Use
  Company Number: PHHY2011US09502

PATIENT
  Sex: Female
  Weight: 87.528 kg

DRUGS (23)
  1. LASIX [Concomitant]
     Dosage: 1 DF, QD (AM)
  2. CLONAZEPAM [Concomitant]
     Dosage: 2 DF, QHS
  3. PERCOCET [Concomitant]
     Dosage: 2 DF, TID
  4. METHADONE HCL [Concomitant]
     Dosage: 2 DF, TID
  5. VITAMIN D [Concomitant]
     Dosage: 5000 U, DAILY
  6. WELLBUTRIN [Concomitant]
     Dosage: 150 MG, TID
  7. ADDERALL 10 [Concomitant]
     Dosage: 2 DF, BID
  8. MULTI-VITAMINS [Concomitant]
     Dosage: UNK
  9. FLOTRIN [Concomitant]
     Dosage: 1 DF, DAILY
  10. MORPHINE [Concomitant]
     Dosage: UNK
     Route: 037
  11. FLEXERIL [Concomitant]
     Dosage: 10 MG, TID
  12. PILOCARPINE [Concomitant]
     Dosage: 5 MG, QID
  13. PROMETRIUM [Concomitant]
     Dosage: 100 MG, QD
  14. BUPIVACAINE HCL [Concomitant]
     Dosage: UNK
     Route: 037
  15. LOVAZA [Concomitant]
     Dosage: 1200/684 MG DAILY
  16. POTASSIUM [Concomitant]
     Dosage: 20 MG, DAILY
     Dates: start: 20110301
  17. CALCIUM [Concomitant]
     Dosage: 630 MG, DAILY
  18. GILENYA [Suspect]
     Indication: MULTIPLE SCLEROSIS
     Dosage: 0.5 MG, QD
     Route: 048
     Dates: start: 20110120
  19. PROZAC [Concomitant]
     Dosage: 20 MG, QID
  20. AMANTADINE HCL [Concomitant]
     Dosage: 100 MG, BID
  21. ROBAXIN [Concomitant]
     Dosage: 750 MG, TID
  22. NEURONTIN [Concomitant]
     Dosage: 600 MG, TID
  23. VITAMIN B-12 [Concomitant]
     Dosage: 2000 MG, DAILY

REACTIONS (16)
  - ABDOMINAL DISCOMFORT [None]
  - FATIGUE [None]
  - MUSCLE SPASMS [None]
  - NAUSEA [None]
  - MEMORY IMPAIRMENT [None]
  - ALOPECIA [None]
  - DRY MOUTH [None]
  - DRY SKIN [None]
  - BLOOD ALKALINE PHOSPHATASE INCREASED [None]
  - FALL [None]
  - GAIT DISTURBANCE [None]
  - TREMOR [None]
  - LYMPHOCYTE COUNT DECREASED [None]
  - SPEECH DISORDER [None]
  - ACTIVITIES OF DAILY LIVING IMPAIRED [None]
  - VISUAL IMPAIRMENT [None]
